FAERS Safety Report 25689284 (Version 2)
Quarter: 2025Q3

REPORT INFORMATION
  Report Type: Spontaneous
  Country: US (occurrence: US)
  Receive Date: 20250818
  Receipt Date: 20250927
  Transmission Date: 20251021
  Serious: Yes (Other)
  Sender: MICRO LABS LIMITED
  Company Number: US-862174955-ML2025-04067

PATIENT
  Age: 76 Year
  Sex: Female
  Weight: 74 kg

DRUGS (1)
  1. TRAVOPROST [Suspect]
     Active Substance: TRAVOPROST
     Indication: Glaucoma
     Dosage: DOSE: ONE DROP IN EACH EYE?FREQUENCY: ONCE A DAY
     Route: 047
     Dates: start: 2025

REACTIONS (4)
  - Glaucoma [Recovered/Resolved]
  - Vision blurred [Recovered/Resolved]
  - Underdose [Unknown]
  - Product container issue [Unknown]

NARRATIVE: CASE EVENT DATE: 20250101
